FAERS Safety Report 9410128 (Version 3)
Quarter: 2014Q1

REPORT INFORMATION
  Report Type: Spontaneous
  Country: US (occurrence: US)
  Receive Date: 20130719
  Receipt Date: 20140103
  Transmission Date: 20141002
  Serious: Yes (Death, Hospitalization)
  Sender: FDA-Public Use
  Company Number: US-B.I. PHARMACEUTICALS,INC./RIDGEFIELD-2013-BI-20697BP

PATIENT
  Age: 71 Year
  Sex: Male
  Weight: 68.04 kg

DRUGS (10)
  1. PRADAXA [Suspect]
     Indication: ATRIAL FIBRILLATION
     Dates: start: 20110420, end: 20120620
  2. COUMADIN [Suspect]
     Dosage: 4 MG
     Route: 048
     Dates: end: 20121031
  3. COUMADIN [Suspect]
     Route: 048
     Dates: start: 20121105
  4. ATENOLOL [Concomitant]
     Dosage: 50 MG
  5. DIGOXIN [Concomitant]
     Dosage: 0.125 MG
  6. DILTIAZEM [Concomitant]
     Dosage: 120 MG
  7. LEVOTHYROXINE [Concomitant]
  8. NIASPAN [Concomitant]
     Dosage: 500 MG
  9. SIMVASTATIN [Concomitant]
     Dosage: 40 MG
  10. ASPIRIN [Concomitant]

REACTIONS (3)
  - Haemorrhagic stroke [Fatal]
  - Haemorrhagic anaemia [Unknown]
  - Iron deficiency [Unknown]
